FAERS Safety Report 9185016 (Version 2)
Quarter: 2013Q2

REPORT INFORMATION
  Report Type: Spontaneous
  Country: US (occurrence: US)
  Receive Date: 20130325
  Receipt Date: 20130423
  Transmission Date: 20140414
  Serious: Yes (Death, Hospitalization)
  Sender: FDA-Public Use
  Company Number: US-B.I. PHARMACEUTICALS,INC./RIDGEFIELD-2013-BI-08001BP

PATIENT
  Age: 85 Year
  Sex: Male
  Weight: 61.69 kg

DRUGS (18)
  1. PRADAXA [Suspect]
     Dates: start: 201106, end: 20110923
  2. BUMEX [Concomitant]
  3. DIOVAN [Concomitant]
  4. COLACE [Concomitant]
  5. VITAMIN D [Concomitant]
  6. TIMOLOL [Concomitant]
  7. CLONIDINE [Concomitant]
  8. LIPITOR [Concomitant]
  9. FELODIPINE [Concomitant]
  10. TOPROL [Concomitant]
  11. ATIVAN [Concomitant]
  12. TYLENOL [Concomitant]
  13. BENADRYL [Concomitant]
  14. SENNA [Concomitant]
  15. GLYBURIDE [Concomitant]
  16. PANTOPRAZOLE [Concomitant]
  17. AMIODARONE [Concomitant]
     Dates: start: 2011
  18. ASPIRIN [Concomitant]

REACTIONS (1)
  - Haemorrhage intracranial [Fatal]
